FAERS Safety Report 14350694 (Version 3)
Quarter: 2018Q1

REPORT INFORMATION
  Report Type: Spontaneous
  Country: US (occurrence: US)
  Receive Date: 20180104
  Receipt Date: 20180125
  Transmission Date: 20180509
  Serious: No
  Sender: FDA-Public Use
  Company Number: US-009507513-1801USA001108

PATIENT
  Sex: Female
  Weight: 74.83 kg

DRUGS (1)
  1. NEXPLANON [Suspect]
     Active Substance: ETONOGESTREL
     Indication: CONTRACEPTION
     Dosage: 1 ROD/3 YEAR
     Route: 059
     Dates: start: 20171129, end: 20171208

REACTIONS (6)
  - Implant site pruritus [Recovered/Resolved]
  - Urticaria [Recovered/Resolved]
  - Implant site erythema [Recovered/Resolved]
  - Hypersensitivity [Unknown]
  - Implant site rash [Unknown]
  - Implant site hypersensitivity [Unknown]

NARRATIVE: CASE EVENT DATE: 2017
